FAERS Safety Report 9468830 (Version 1)
Quarter: 2013Q3

REPORT INFORMATION
  Report Type: Spontaneous
  Country: IT (occurrence: None)
  Receive Date: 20130816
  Receipt Date: 20130816
  Transmission Date: 20140515
  Serious: Yes (Other)
  Sender: FDA-Public Use
  Company Number: 2013AP007201

PATIENT
  Age: 80 Year
  Sex: Female

DRUGS (6)
  1. RAMIPRIL [Suspect]
     Indication: HYPERTENSION
     Route: 048
     Dates: start: 20130101, end: 20130727
  2. HYDROCHLOROTHIAZIDE [Suspect]
     Indication: HYPERTENSION
     Dates: start: 20130101, end: 20130727
  3. CARDIOASPIRIN (ACETYLSALICYLIC ACID) [Concomitant]
  4. BISOPROLOL FUMARATE (BISOPROLOL FUMARATE) [Concomitant]
  5. SIMVASTATIN (SIMVASTATIN) [Concomitant]
  6. NITROGLYCERIN (GLYCERYL TRINITRATE) [Concomitant]

REACTIONS (4)
  - Loss of consciousness [None]
  - Hypoaesthesia [None]
  - Orthostatic hypotension [None]
  - Syncope [None]
